FAERS Safety Report 4410666-8 (Version None)
Quarter: 2004Q3

REPORT INFORMATION
  Report Type: 
  Country: None (occurrence: None)
  Receive Date: 20040726
  Receipt Date: 20040712
  Transmission Date: 20050211
  Serious: No
  Sender: FDA-Public Use
  Company Number: 04P-020-0266908-00

PATIENT
  Age: 32 Year
  Sex: Female

DRUGS (2)
  1. NORVIR [Suspect]
     Indication: HIV INFECTION
     Dosage: 400 MG, 1 IN 1 D, PER ORAL
     Route: 048
     Dates: start: 20031020, end: 20040604
  2. TIPRANAVIR [Concomitant]

REACTIONS (3)
  - DRUG EXPOSURE DURING PREGNANCY [None]
  - INTRA-UTERINE DEATH [None]
  - VAGINAL HAEMORRHAGE [None]
